FAERS Safety Report 6059812-3 (Version None)
Quarter: 2009Q1

REPORT INFORMATION
  Report Type: 
  Country: None (occurrence: None)
  Receive Date: 20090130
  Receipt Date: 20080812
  Transmission Date: 20090719
  Serious: No
  Sender: FDA-Public Use
  Company Number: US-ABBOTT-08P-163-0470535-00

PATIENT
  Age: 70 Year
  Sex: Male

DRUGS (2)
  1. LUPRON DEPOT [Suspect]
     Indication: PROSTATIC DISORDER
  2. LUPRON DEPOT [Suspect]
     Dates: start: 20080808, end: 20080808

REACTIONS (1)
  - UNDERDOSE [None]
